FAERS Safety Report 14357696 (Version 2)
Quarter: 2018Q1

REPORT INFORMATION
  Report Type: Report from Study
  Country: US (occurrence: US)
  Receive Date: 20180105
  Receipt Date: 20180305
  Transmission Date: 20180509
  Serious: Yes (Death)
  Sender: FDA-Public Use
  Company Number: US-EXELIXIS-CABO-17011881

PATIENT
  Age: 72 Year
  Sex: Male

DRUGS (5)
  1. COREG [Concomitant]
     Active Substance: CARVEDILOL
  2. CABOMETYX [Suspect]
     Active Substance: CABOZANTINIB S-MALATE
     Dosage: 20 MG, QD
     Route: 048
     Dates: start: 20170331
  3. NEURONTIN [Concomitant]
     Active Substance: GABAPENTIN
  4. IMDUR [Concomitant]
     Active Substance: ISOSORBIDE MONONITRATE
  5. CABOMETYX [Suspect]
     Active Substance: CABOZANTINIB S-MALATE
     Indication: RENAL CANCER
     Dosage: 40 MG, QD
     Route: 048
     Dates: start: 20170324

REACTIONS (1)
  - Death [Fatal]

NARRATIVE: CASE EVENT DATE: 20171124
